FAERS Safety Report 17865239 (Version 1)
Quarter: 2020Q2

REPORT INFORMATION
  Report Type: Spontaneous
  Country: US (occurrence: US)
  Receive Date: 20200605
  Receipt Date: 20200605
  Transmission Date: 20200714
  Serious: Yes (Other)
  Sender: FDA-Public Use
  Company Number: None

PATIENT
  Age: 53 Year
  Sex: Female

DRUGS (8)
  1. PROTONIX 20MG [Concomitant]
     Dates: start: 20200304
  2. ZOCOR [Concomitant]
     Active Substance: SIMVASTATIN
     Dates: start: 20200304
  3. SUDAFED 12 H [Concomitant]
     Dates: start: 20200304
  4. VALSARTAN 160MG [Concomitant]
     Active Substance: VALSARTAN
     Dates: start: 20200304
  5. AIMOVIG [Suspect]
     Active Substance: ERENUMAB-AOOE
     Indication: MIGRAINE
     Dosage: ?          OTHER FREQUENCY:ONCE PER MONTH;?
     Route: 058
     Dates: start: 20200317
  6. ZOFRAN [Concomitant]
     Active Substance: ONDANSETRON HYDROCHLORIDE
     Dates: start: 20200304
  7. ELAVIL 10MG [Concomitant]
     Dates: start: 20200304
  8. SUCRALFATE 1 GRAM [Concomitant]
     Dates: start: 20200304

REACTIONS (1)
  - Constipation [None]

NARRATIVE: CASE EVENT DATE: 20200605
